FAERS Safety Report 8179367-7 (Version None)
Quarter: 2012Q1

REPORT INFORMATION
  Report Type: 
  Country: None (occurrence: None)
  Receive Date: 20120302
  Receipt Date: 20120224
  Transmission Date: 20120608
  Serious: Yes (Other)
  Sender: FDA-Public Use
  Company Number: US-BAYER-2012-018552

PATIENT
  Sex: Female

DRUGS (3)
  1. DROSPIRENONE AND ETHINYL ESTRADIOL [Suspect]
     Dosage: UNK
     Dates: start: 20010101, end: 20100101
  2. YASMIN [Suspect]
     Dosage: UNK
     Dates: start: 20010101, end: 20100101
  3. YAZ [Suspect]
     Dosage: UNK
     Dates: start: 20010101, end: 20100101

REACTIONS (5)
  - MOOD SWINGS [None]
  - FATIGUE [None]
  - BILIARY DYSKINESIA [None]
  - HEADACHE [None]
  - ANXIETY [None]
